FAERS Safety Report 6159000-6 (Version None)
Quarter: 2009Q2

REPORT INFORMATION
  Report Type: 
  Country: None (occurrence: None)
  Receive Date: 20090417
  Receipt Date: 20090415
  Transmission Date: 20091009
  Serious: Yes (Death, Other)
  Sender: FDA-Public Use
  Company Number: JP-JNJFOC-20090307315

PATIENT
  Age: 88 Year
  Sex: Male

DRUGS (2)
  1. DUROTEP MT [Suspect]
     Dosage: 1/2 PATCH
     Route: 062
  2. DUROTEP MT [Suspect]
     Indication: CANCER PAIN
     Route: 062

REACTIONS (3)
  - DELIRIUM [None]
  - OESOPHAGEAL CARCINOMA [None]
  - WRONG TECHNIQUE IN DRUG USAGE PROCESS [None]
